FAERS Safety Report 9540316 (Version 2)
Quarter: 2014Q2

REPORT INFORMATION
  Report Type: Spontaneous
  Country: JP (occurrence: JP)
  Receive Date: 20130920
  Receipt Date: 20140430
  Transmission Date: 20141212
  Serious: Yes (Other)
  Sender: FDA-Public Use
  Company Number: JP-ASTRAZENECA-2013SE69191

PATIENT
  Age: 79 Year
  Sex: Female

DRUGS (10)
  1. XYLOCAINE [Suspect]
     Indication: LOCAL ANAESTHESIA
  2. ROPIVACAINE [Concomitant]
     Indication: LOCAL ANAESTHESIA
  3. THIAMYLAL [Concomitant]
     Indication: INDUCTION OF ANAESTHESIA
  4. FENTANYL [Concomitant]
     Indication: INDUCTION OF ANAESTHESIA
  5. FENTANYL [Concomitant]
     Indication: INDUCTION OF ANAESTHESIA
     Route: 042
  6. VECURONIUM [Concomitant]
     Indication: INDUCTION OF ANAESTHESIA
  7. SEVOFLURANE [Concomitant]
     Indication: MAINTENANCE OF ANAESTHESIA
  8. REMIFENTANIL [Concomitant]
     Indication: MAINTENANCE OF ANAESTHESIA
     Route: 042
  9. NICORANDIL [Concomitant]
     Indication: PROPHYLAXIS
     Route: 041
  10. OXYGEN [Concomitant]
     Indication: MAINTENANCE OF ANAESTHESIA

REACTIONS (3)
  - Hypertensive encephalopathy [Recovering/Resolving]
  - Hypertension [Recovered/Resolved]
  - Heart rate increased [Recovered/Resolved]
